FAERS Safety Report 8397047-X (Version None)
Quarter: 2012Q2

REPORT INFORMATION
  Report Type: 
  Country: None (occurrence: None)
  Receive Date: 20120530
  Receipt Date: 20120521
  Transmission Date: 20120825
  Serious: Yes (Hospitalization, Other)
  Sender: FDA-Public Use
  Company Number: US-ABBOTT-12P-163-0932009-00

PATIENT
  Sex: Female
  Weight: 69.008 kg

DRUGS (13)
  1. HUMIRA [Suspect]
     Dates: start: 20120428
  2. CHERATUSSIN AC SYRUP [Concomitant]
     Indication: COUGH
     Dosage: 1-2 TEASPOON EVERY 6 HOURS AS NEEDED
  3. DILAUDID [Concomitant]
     Indication: PAIN
  4. FERROUS SULFATE TAB [Concomitant]
     Indication: PRODUCT USED FOR UNKNOWN INDICATION
  5. VITAMIN TAB [Concomitant]
     Indication: PRODUCT USED FOR UNKNOWN INDICATION
     Dosage: DAILY
  6. BUPROPION HCL [Concomitant]
     Indication: DEPRESSION
  7. XANAX [Concomitant]
     Indication: ANXIETY
  8. HUMIRA [Suspect]
     Indication: CROHN'S DISEASE
     Dates: start: 20120324, end: 20120324
  9. PREDNISONE TAB [Concomitant]
     Indication: PRODUCT USED FOR UNKNOWN INDICATION
  10. IMURAN [Concomitant]
     Indication: PRODUCT USED FOR UNKNOWN INDICATION
  11. WELLBUTRIN [Concomitant]
     Indication: PRODUCT USED FOR UNKNOWN INDICATION
  12. HUMIRA [Suspect]
     Dates: start: 20120407, end: 20120407
  13. CALCIUM + VITAMIN D [Concomitant]
     Indication: PRODUCT USED FOR UNKNOWN INDICATION
     Dosage: DAILY

REACTIONS (12)
  - DEHYDRATION [None]
  - NAUSEA [None]
  - BLOOD POTASSIUM DECREASED [None]
  - TOOTHACHE [None]
  - INJECTION SITE PAIN [None]
  - INJECTION SITE EXTRAVASATION [None]
  - URINARY TRACT INFECTION [None]
  - INFLUENZA LIKE ILLNESS [None]
  - PYREXIA [None]
  - DIARRHOEA [None]
  - VOMITING [None]
  - DECREASED APPETITE [None]
